FAERS Safety Report 8178250-0 (Version None)
Quarter: 2012Q1

REPORT INFORMATION
  Report Type: 
  Country: None (occurrence: None)
  Receive Date: 20120301
  Receipt Date: 20120224
  Transmission Date: 20120608
  Serious: Yes (Death, Hospitalization, Other)
  Sender: FDA-Public Use
  Company Number: US-CELGENEUS-163-21880-12022846

PATIENT
  Age: 66 Year
  Sex: Male

DRUGS (15)
  1. LEVOTHYROXINE SODIUM [Concomitant]
     Route: 065
  2. ASPIRIN [Concomitant]
     Route: 065
  3. REVLIMID [Suspect]
     Indication: AMYLOIDOSIS
     Dosage: 15 MILLIGRAM
     Route: 048
     Dates: start: 20110523, end: 20110901
  4. PHENYLEPHRINE [Concomitant]
     Route: 065
     Dates: start: 20110901
  5. PLATELETS [Concomitant]
     Dosage: 1 UNIT
     Route: 041
     Dates: start: 20110901, end: 20110901
  6. MELPHALAN HYDROCHLORIDE [Concomitant]
     Indication: AMYLOIDOSIS
     Route: 065
     Dates: start: 20110523
  7. NOREPINEPHRINE BITARTRATE [Concomitant]
     Route: 065
     Dates: start: 20110901
  8. PRBC [Concomitant]
     Dosage: 4 UNITS
     Route: 041
     Dates: start: 20110901, end: 20110901
  9. DOPAMINE HCL [Concomitant]
     Route: 065
     Dates: start: 20110901
  10. AMIODARONE HCL [Concomitant]
     Route: 065
     Dates: start: 20110901
  11. DEXAMETHASONE [Concomitant]
     Indication: AMYLOIDOSIS
     Route: 065
     Dates: start: 20110523
  12. ONDANSETRON [Concomitant]
     Route: 065
  13. FUROSEMIDE [Concomitant]
     Route: 065
  14. POTASSIUM CHLORIDE [Concomitant]
     Route: 065
  15. METOLAZONE [Concomitant]
     Route: 065

REACTIONS (8)
  - PLEURAL EFFUSION [None]
  - HYPOTENSION [None]
  - RESPIRATORY ARREST [None]
  - DEATH [None]
  - MENTAL STATUS CHANGES [None]
  - NEUTROPENIA [None]
  - ANAEMIA [None]
  - THROMBOCYTOPENIA [None]
